FAERS Safety Report 8089002-4 (Version None)
Quarter: 2012Q1

REPORT INFORMATION
  Report Type: 
  Country: None (occurrence: None)
  Receive Date: 20120128
  Receipt Date: 20110714
  Transmission Date: 20120608
  Serious: No
  Sender: FDA-Public Use
  Company Number: US-ABBOTT-11P-163-0697030-00

PATIENT
  Sex: Male
  Weight: 80.812 kg

DRUGS (10)
  1. MOTRIN [Concomitant]
     Indication: PAIN
  2. HUMIRA [Suspect]
     Indication: RHEUMATOID ARTHRITIS
     Dates: start: 20101201, end: 20110201
  3. TRAZODONE HCL [Concomitant]
     Indication: DEPRESSION
  4. HUMIRA [Suspect]
     Indication: RHEUMATOID ARTHRITIS
     Dates: start: 20100915
  5. METHOTREXATE [Concomitant]
     Indication: RHEUMATOID ARTHRITIS
  6. LAMICTAL [Concomitant]
     Indication: DEPRESSION
  7. BUSPAR [Concomitant]
     Indication: DEPRESSION
  8. XANAX [Concomitant]
     Indication: DEPRESSION
  9. RISPERDAL [Concomitant]
     Indication: PRODUCT USED FOR UNKNOWN INDICATION
     Dosage: AT BEDTIME
  10. AMBIEN [Concomitant]
     Indication: INSOMNIA
     Dosage: AT NIGHT

REACTIONS (6)
  - PYREXIA [None]
  - PAIN [None]
  - CHEILITIS [None]
  - VOMITING [None]
  - RASH [None]
  - INFLUENZA [None]
